FAERS Safety Report 5646798-6 (Version None)
Quarter: 2008Q1

REPORT INFORMATION
  Report Type: 
  Country: None (occurrence: None)
  Receive Date: 20080228
  Receipt Date: 20080214
  Transmission Date: 20080703
  Serious: Yes (Life-Threatening, Hospitalization, Other)
  Sender: FDA-Public Use
  Company Number: FABR-1000053

PATIENT
  Age: 43 Year
  Sex: Female

DRUGS (2)
  1. FABRAZYME [Suspect]
     Indication: FABRY'S DISEASE
     Dosage: 70 MG, Q2W, INTRAVENOUS
     Route: 042
     Dates: start: 20070126, end: 20071106
  2. LEVOTHYROXINE SODIUM [Concomitant]

REACTIONS (5)
  - CENTRAL NERVOUS SYSTEM LESION [None]
  - CEREBRAL INFARCTION [None]
  - CEREBROVASCULAR ACCIDENT [None]
  - SUDDEN HEARING LOSS [None]
  - TINNITUS [None]
